FAERS Safety Report 4975354-8 (Version None)
Quarter: 2006Q2

REPORT INFORMATION
  Report Type: 
  Country: None (occurrence: None)
  Receive Date: 20060418
  Receipt Date: 20050901
  Transmission Date: 20061013
  Serious: Yes (Hospitalization)
  Sender: FDA-Public Use
  Company Number: US-MERCK-0509USA00434

PATIENT
  Age: 66 Year
  Sex: Male

DRUGS (9)
  1. VIOXX [Suspect]
     Route: 048
  2. VIOXX [Suspect]
     Route: 048
     Dates: start: 20040106, end: 20040101
  3. DIGOXIN [Concomitant]
     Route: 065
  4. PRAVACHOL [Concomitant]
     Route: 065
  5. ASPIRIN [Concomitant]
     Route: 065
  6. DIOVAN [Concomitant]
     Route: 065
  7. ALDACTONE [Concomitant]
     Route: 065
  8. LASIX [Concomitant]
     Route: 065
  9. NITROGLYCERIN [Concomitant]
     Route: 065

REACTIONS (9)
  - ANGINA UNSTABLE [None]
  - ATRIAL FIBRILLATION [None]
  - ATRIAL FLUTTER [None]
  - CARDIAC FAILURE CONGESTIVE [None]
  - CEREBROVASCULAR ACCIDENT [None]
  - CONGESTIVE CARDIOMYOPATHY [None]
  - COSTOCHONDRITIS [None]
  - INJURY [None]
  - PLEURAL EFFUSION [None]
